FAERS Safety Report 12237396 (Version 1)
Quarter: 2016Q2

REPORT INFORMATION
  Report Type: Spontaneous
  Country: JP (occurrence: JP)
  Receive Date: 20160405
  Receipt Date: 20160405
  Transmission Date: 20160815
  Serious: Yes (Other)
  Sender: FDA-Public Use
  Company Number: JP-PFIZER INC-2015270968

PATIENT
  Age: 7 Decade
  Sex: Male

DRUGS (3)
  1. SUTENT [Suspect]
     Active Substance: SUNITINIB MALATE
     Indication: METASTATIC RENAL CELL CARCINOMA
     Dosage: 50 MG, DAILY
     Route: 048
     Dates: start: 20150525, end: 20150730
  2. SUTENT [Suspect]
     Active Substance: SUNITINIB MALATE
     Dosage: 37.5 MG, DAILY
     Route: 048
     Dates: end: 201511
  3. SUTENT [Suspect]
     Active Substance: SUNITINIB MALATE
     Dosage: 50 MG, DAILY
     Route: 048
     Dates: start: 20150813

REACTIONS (6)
  - Tumour haemorrhage [Recovered/Resolved]
  - Pancytopenia [Recovered/Resolved]
  - Anaemia [Recovering/Resolving]
  - Tumour haemorrhage [Recovered/Resolved]
  - Disease progression [Recovered/Resolved]
  - Metastatic renal cell carcinoma [Recovered/Resolved]

NARRATIVE: CASE EVENT DATE: 20150730
